FAERS Safety Report 7491294 (Version 2)
Quarter: 2014Q2

REPORT INFORMATION
  Report Type: Spontaneous
  Country: US (occurrence: US)
  Receive Date: 20100721
  Receipt Date: 20140417
  Transmission Date: 20141212
  Serious: No
  Sender: FDA-Public Use
  Company Number: US-BIOGENIDEC-2010BI023994

PATIENT
  Age: 43 Year
  Sex: Female

DRUGS (2)
  1. AVONEX [Suspect]
     Indication: MULTIPLE SCLEROSIS
     Route: 030
  2. AVONEX [Suspect]
     Indication: MULTIPLE SCLEROSIS
     Route: 030
     Dates: start: 20090101, end: 20130826

REACTIONS (5)
  - Ophthalmoplegia [Recovered/Resolved]
  - Back pain [Recovered/Resolved]
  - Influenza like illness [Recovered/Resolved]
  - Rash erythematous [Unknown]
  - Pain in extremity [Unknown]
